FAERS Safety Report 6504586-2 (Version None)
Quarter: 2009Q4

REPORT INFORMATION
  Report Type: 
  Country: None (occurrence: None)
  Receive Date: 20091215
  Receipt Date: 20091204
  Transmission Date: 20100525
  Serious: Yes (Death, Hospitalization)
  Sender: FDA-Public Use
  Company Number: 2009AC000435

PATIENT
  Age: 60 Year
  Sex: Female

DRUGS (18)
  1. DIGOXIN [Suspect]
     Indication: CARDIAC DISORDER
     Dosage: 0.125 MG; PO
     Route: 048
  2. FLUOXETINE [Concomitant]
  3. LEVAQUIN [Concomitant]
  4. PROTONIX [Concomitant]
  5. SYNTHROID [Concomitant]
  6. TOPROL-XL [Concomitant]
  7. PLAVIX [Concomitant]
  8. ASPIRIN [Concomitant]
  9. PROTONIX [Concomitant]
  10. COZAAR [Concomitant]
  11. LASIX [Concomitant]
  12. POTASSIUM CHLORIDE [Concomitant]
  13. IRON [Concomitant]
  14. ZETIA [Concomitant]
  15. TRICOR [Concomitant]
  16. ALDACTONE [Concomitant]
  17. CLARINEX [Concomitant]
  18. PACERONE [Concomitant]

REACTIONS (24)
  - ABDOMINAL PAIN [None]
  - ANXIETY [None]
  - ATRIAL FIBRILLATION [None]
  - BRADYCARDIA [None]
  - CARDIAC DISORDER [None]
  - CARDIAC FAILURE CONGESTIVE [None]
  - CARDIOMEGALY [None]
  - CORONARY ARTERY DISEASE [None]
  - COUGH [None]
  - DEPRESSION [None]
  - GASTROOESOPHAGEAL REFLUX DISEASE [None]
  - HYPERBILIRUBINAEMIA [None]
  - HYPERLIPIDAEMIA [None]
  - HYPERTENSION [None]
  - HYPOTHYROIDISM [None]
  - MULTI-ORGAN FAILURE [None]
  - NAUSEA [None]
  - PANCREATITIS [None]
  - PNEUMONIA [None]
  - RESPIRATORY FAILURE [None]
  - RHINITIS ALLERGIC [None]
  - SEPTIC SHOCK [None]
  - SPLENIC ABSCESS [None]
  - THERAPEUTIC AGENT TOXICITY [None]
